FAERS Safety Report 11152694 (Version 1)
Quarter: 2015Q2

REPORT INFORMATION
  Report Type: Spontaneous
  Country: US (occurrence: US)
  Receive Date: 20150601
  Receipt Date: 20150601
  Transmission Date: 20150821
  Serious: Yes (Other)
  Sender: FDA-Public Use
  Company Number: US-PURDUE-USA-2015-0123816

PATIENT
  Sex: Female

DRUGS (1)
  1. HYDROCODONE [Suspect]
     Active Substance: HYDROCODONE
     Indication: PAIN
     Route: 048

REACTIONS (5)
  - Gait disturbance [Unknown]
  - Post laminectomy syndrome [Unknown]
  - Spinal fusion surgery [Unknown]
  - Pain [Unknown]
  - Spinal decompression [Unknown]

NARRATIVE: CASE EVENT DATE: 2014
